FAERS Safety Report 10228540 (Version 2)
Quarter: 2014Q3

REPORT INFORMATION
  Report Type: Spontaneous
  Country: US (occurrence: US)
  Receive Date: 20140610
  Receipt Date: 20140703
  Transmission Date: 20150326
  Serious: No
  Sender: FDA-Public Use
  Company Number: US-TEVA-481531USA

PATIENT
  Age: 33 Year
  Sex: Female

DRUGS (18)
  1. AMANTADINE [Concomitant]
     Active Substance: AMANTADINE
  2. MAXALT [Concomitant]
     Active Substance: RIZATRIPTAN BENZOATE
  3. NASONEX [Concomitant]
     Active Substance: MOMETASONE FUROATE
  4. PROVIGIL [Suspect]
     Active Substance: MODAFINIL
     Dates: end: 2007
  5. TRILEPTAL [Suspect]
     Active Substance: OXCARBAZEPINE
  6. MELATONIN [Concomitant]
     Active Substance: MELATONIN
  7. EFFEXOR XR [Concomitant]
     Active Substance: VENLAFAXINE HYDROCHLORIDE
  8. ALPRAZOLAM. [Concomitant]
     Active Substance: ALPRAZOLAM
  9. DILTIAZEM HYDROCHLORIDE EXTENDED RELEASE [Concomitant]
     Active Substance: DILTIAZEM HYDROCHLORIDE
  10. CETIRIZINE [Concomitant]
     Active Substance: CETIRIZINE HYDROCHLORIDE
  11. NUVIGIL [Suspect]
     Active Substance: ARMODAFINIL
     Indication: CIRCADIAN RHYTHM SLEEP DISORDER
     Dosage: 250 MG IN MORNING AND 250 MG 4 HOURS LATER
  12. BACLOFEN. [Concomitant]
     Active Substance: BACLOFEN
  13. OMEPRAZOLE. [Concomitant]
     Active Substance: OMEPRAZOLE
  14. PRAZOSIN [Concomitant]
     Active Substance: PRAZOSIN
  15. NUVIGIL [Suspect]
     Active Substance: ARMODAFINIL
     Indication: AFFECTIVE DISORDER
  16. NUVIGIL [Suspect]
     Active Substance: ARMODAFINIL
     Indication: SLEEP DISORDER
  17. LISINOPRIL. [Concomitant]
     Active Substance: LISINOPRIL
  18. FLUOXETINE [Concomitant]
     Active Substance: FLUOXETINE\FLUOXETINE HYDROCHLORIDE

REACTIONS (8)
  - Drug effect decreased [Recovered/Resolved]
  - Somnolence [Not Recovered/Not Resolved]
  - Fatigue [Not Recovered/Not Resolved]
  - Yawning [Not Recovered/Not Resolved]
  - Eye movement disorder [Not Recovered/Not Resolved]
  - Blood sodium decreased [Recovered/Resolved]
  - Therapeutic response changed [Unknown]
  - Impaired driving ability [Not Recovered/Not Resolved]

NARRATIVE: CASE EVENT DATE: 20140514
